FAERS Safety Report 7335456-8 (Version None)
Quarter: 2011Q1

REPORT INFORMATION
  Report Type: 
  Country: None (occurrence: None)
  Receive Date: 20110302
  Receipt Date: 20110302
  Transmission Date: 20110831
  Serious: No
  Sender: FDA-Public Use
  Company Number: None

PATIENT

DRUGS (1)
  1. AMIODARONE HCL [Suspect]
     Indication: CARDIAC FAILURE CONGESTIVE
     Dosage: 200 MG EVERY DAY PO
     Route: 048
     Dates: start: 20100913, end: 20110127

REACTIONS (3)
  - CARDIAC MURMUR [None]
  - PULMONARY FIBROSIS [None]
  - ALVEOLITIS [None]
